FAERS Safety Report 14885016 (Version 1)
Quarter: 2018Q2

REPORT INFORMATION
  Report Type: Spontaneous
  Country: US (occurrence: US)
  Receive Date: 20180511
  Receipt Date: 20180511
  Transmission Date: 20180711
  Serious: No
  Sender: FDA-Public Use
  Company Number: US-GE HEALTHCARE LIFE SCIENCES-2018CSU001027

PATIENT
  Age: 79 Year
  Sex: Male

DRUGS (1)
  1. OMNIPAQUE [Suspect]
     Active Substance: IOHEXOL
     Indication: PRODUCT USED FOR UNKNOWN INDICATION
     Dosage: RATE OF 1.2 ML/SEC
     Route: 042
     Dates: start: 20170124, end: 20170124

REACTIONS (1)
  - Contrast media allergy [Unknown]

NARRATIVE: CASE EVENT DATE: 20170124
